FAERS Safety Report 13566619 (Version 3)
Quarter: 2017Q2

REPORT INFORMATION
  Report Type: Spontaneous
  Country: PT (occurrence: PT)
  Receive Date: 20170522
  Receipt Date: 20170605
  Transmission Date: 20170830
  Serious: Yes (Other)
  Sender: FDA-Public Use
  Company Number: PT-UCBSA-2017019265

PATIENT
  Age: 60 Year
  Sex: Male

DRUGS (1)
  1. NEUPRO [Suspect]
     Active Substance: ROTIGOTINE
     Indication: PRODUCT USED FOR UNKNOWN INDICATION
     Dosage: 2 MG, ONCE DAILY (QD)
     Route: 062
     Dates: start: 20170421, end: 2017

REACTIONS (6)
  - Intentional product misuse [Unknown]
  - Seizure [Recovered/Resolved]
  - Muscular weakness [Recovered/Resolved]
  - Feeling abnormal [Recovered/Resolved]
  - Parkinson^s disease [Recovered/Resolved]
  - Product quality issue [Unknown]

NARRATIVE: CASE EVENT DATE: 2017
